FAERS Safety Report 6624749-5 (Version None)
Quarter: 2010Q1

REPORT INFORMATION
  Report Type: 
  Country: None (occurrence: None)
  Receive Date: 20100310
  Receipt Date: 20100216
  Transmission Date: 20100710
  Serious: Yes (Hospitalization)
  Sender: FDA-Public Use
  Company Number: FR-PFIZER INC-2008075383

PATIENT
  Age: 62 Year
  Sex: Female
  Weight: 58 kg

DRUGS (2)
  1. SUNITINIB MALATE [Suspect]
     Indication: BREAST CANCER METASTATIC
     Dosage: 37.5 MG, 1X/DAY
     Route: 048
     Dates: start: 20080726, end: 20080823
  2. *CAPECITABINE [Suspect]
     Indication: BREAST CANCER METASTATIC
     Dosage: 1500 MG, TWICE DAILY FROM DAY1 TO DAY14, EVERY THREE WEEKS
     Route: 048
     Dates: start: 20080130, end: 20080623

REACTIONS (2)
  - NERVOUS SYSTEM DISORDER [None]
  - PLEURAL EFFUSION [None]
